FAERS Safety Report 19231184 (Version 1)
Quarter: 2021Q2

REPORT INFORMATION
  Report Type: Spontaneous
  Country: US (occurrence: US)
  Receive Date: 20210507
  Receipt Date: 20210507
  Transmission Date: 20210717
  Serious: No
  Sender: FDA-Public Use
  Company Number: US-PERRIGO-21US002431

PATIENT
  Age: 70 Year
  Sex: Male
  Weight: 86.17 kg

DRUGS (1)
  1. PERMETHRIN. [Suspect]
     Active Substance: PERMETHRIN
     Indication: PROPHYLAXIS
     Dosage: APPROX. 45 G, 4 TIMES
     Route: 061
     Dates: start: 202012, end: 202101

REACTIONS (2)
  - Off label use [Recovered/Resolved]
  - Paraesthesia [Not Recovered/Not Resolved]

NARRATIVE: CASE EVENT DATE: 202012
